FAERS Safety Report 5372025-3 (Version None)
Quarter: 2007Q2

REPORT INFORMATION
  Report Type: 
  Country: None (occurrence: None)
  Receive Date: 20070627
  Receipt Date: 20070625
  Transmission Date: 20071010
  Serious: Yes (Life-Threatening)
  Sender: FDA-Public Use
  Company Number: DE-BRISTOL-MYERS SQUIBB COMPANY-13824438

PATIENT
  Age: 35 Year
  Sex: Male

DRUGS (6)
  1. CETUXIMAB [Suspect]
     Indication: NON-SMALL CELL LUNG CANCER
     Route: 042
     Dates: start: 20070516, end: 20070614
  2. CARBOPLATIN [Suspect]
     Indication: NON-SMALL CELL LUNG CANCER
     Route: 042
     Dates: start: 20070516, end: 20070614
  3. DOCETAXEL [Suspect]
     Indication: NON-SMALL CELL LUNG CANCER
     Route: 042
     Dates: start: 20070516, end: 20070614
  4. NOVALGIN [Concomitant]
     Indication: PAIN
     Route: 048
  5. AGOPTON [Concomitant]
     Indication: GASTRIC DISORDER
     Route: 048
  6. CLEXANE [Concomitant]
     Indication: PULMONARY EMBOLISM
     Route: 058

REACTIONS (1)
  - TUMOUR HAEMORRHAGE [None]
